FAERS Safety Report 19766172 (Version 1)
Quarter: 2021Q3

REPORT INFORMATION
  Report Type: Report from Study
  Country: CO (occurrence: CO)
  Receive Date: 20210830
  Receipt Date: 20210830
  Transmission Date: 20211014
  Serious: Yes (Other)
  Sender: FDA-Public Use
  Company Number: NVSC2021CO195466

PATIENT
  Sex: Female
  Weight: 53 kg

DRUGS (1)
  1. LOSARTAN. [Suspect]
     Active Substance: LOSARTAN
     Indication: HYPERTENSION
     Dosage: UNK, Q12H, (STARTED 3 YEARS AGO)
     Route: 048

REACTIONS (2)
  - Ankylosing spondylitis [Unknown]
  - Inappropriate schedule of product administration [Unknown]
